FAERS Safety Report 24770680 (Version 2)
Quarter: 2025Q1

REPORT INFORMATION
  Report Type: Spontaneous
  Country: US (occurrence: US)
  Receive Date: 20241224
  Receipt Date: 20250103
  Transmission Date: 20250409
  Serious: Yes (Other)
  Sender: BAYER HEALTHCARE PHARMACEUTICALS INC.
  Company Number: US-BAYER-2024A178604

PATIENT
  Age: 25 Year
  Sex: Female

DRUGS (1)
  1. KYLEENA [Suspect]
     Active Substance: LEVONORGESTREL
     Indication: Intrauterine contraception
     Dosage: 17.5?G/DAY
     Route: 015
     Dates: start: 20241015, end: 20241211

REACTIONS (10)
  - Vaginal infection [None]
  - Gonorrhoea [None]
  - Vaginal cyst [None]
  - Vaginal discharge [None]
  - Urine abnormality [None]
  - Dyspareunia [None]
  - Device dislocation [None]
  - Ovarian cyst [None]
  - Trichomoniasis [None]
  - Chlamydial infection [None]

NARRATIVE: CASE EVENT DATE: 20240101
